FAERS Safety Report 4918899-9 (Version None)
Quarter: 2006Q1

REPORT INFORMATION
  Report Type: 
  Country: None (occurrence: None)
  Receive Date: 20060222
  Receipt Date: 20060213
  Transmission Date: 20060701
  Serious: Yes (Hospitalization)
  Sender: FDA-Public Use
  Company Number: AU-ROCHE-435930

PATIENT
  Age: 55 Year
  Sex: Male

DRUGS (3)
  1. ROACCUTANE [Suspect]
     Indication: ACNE
     Dosage: THE PATIENT HAS BEEN ON LONG-TERM TREATMENT. DRUG APPLICATION WAS REPORTED AS 3.0 UNSPECIFIED.
     Route: 048
  2. ACETAMINOPHEN W/ CODEINE [Concomitant]
  3. ROHYPNOL [Concomitant]

REACTIONS (6)
  - ARTHRITIS [None]
  - DEPRESSION [None]
  - DRY SKIN [None]
  - FLUSHING [None]
  - HEPATIC FUNCTION ABNORMAL [None]
  - PHOTOSENSITIVITY REACTION [None]
